FAERS Safety Report 9440206 (Version 1)
Quarter: 2013Q3

REPORT INFORMATION
  Report Type: Spontaneous
  Country: GB (occurrence: GB)
  Receive Date: 20130805
  Receipt Date: 20130805
  Transmission Date: 20140515
  Serious: Yes (Other)
  Sender: FDA-Public Use
  Company Number: PHFR2013GB003541

PATIENT
  Age: 47 Year
  Sex: Female

DRUGS (4)
  1. CLOZARIL [Suspect]
     Indication: SCHIZOPHRENIA
     Dosage: 550 MG, UNK
     Route: 048
     Dates: start: 2000
  2. CLOZARIL [Suspect]
     Dosage: UNK
     Route: 048
     Dates: start: 20030728
  3. VENLAFAXINE [Concomitant]
     Dosage: 200 MG, UNK
     Route: 048
     Dates: start: 2000
  4. AMISULPRIDE [Concomitant]
     Dosage: 400 MG, UNK
     Route: 048
     Dates: start: 2000

REACTIONS (2)
  - Upper gastrointestinal haemorrhage [Unknown]
  - Haemoglobin decreased [Unknown]
